FAERS Safety Report 22610709 (Version 1)
Quarter: 2023Q2

REPORT INFORMATION
  Report Type: Spontaneous
  Country: US (occurrence: US)
  Receive Date: 20230616
  Receipt Date: 20230616
  Transmission Date: 20230722
  Serious: No
  Sender: FDA-Public Use
  Company Number: US-PFIZER INC-PV202300105242

PATIENT
  Age: 74 Year
  Sex: Female

DRUGS (1)
  1. IBRANCE [Suspect]
     Active Substance: PALBOCICLIB
     Dosage: 75 MG, CYCLIC [3 WEEKS ON, 1 WEEK OFF]
     Dates: start: 20200709

REACTIONS (6)
  - Mitral valve prolapse [Unknown]
  - Actinic keratosis [Unknown]
  - Osteopenia [Unknown]
  - Anxiety [Unknown]
  - Migraine [Unknown]
  - Neoplasm progression [Unknown]
